FAERS Safety Report 22656072 (Version 1)
Quarter: 2023Q2

REPORT INFORMATION
  Report Type: Report from Study
  Country: BY (occurrence: BY)
  Receive Date: 20230629
  Receipt Date: 20230629
  Transmission Date: 20230722
  Serious: Yes (Other)
  Sender: FDA-Public Use
  Company Number: BY-MYLANLABS-2023M1068232

PATIENT
  Age: 57 Year
  Sex: Male
  Weight: 59 kg

DRUGS (5)
  1. PRETOMANID [Suspect]
     Active Substance: PRETOMANID
     Indication: Product used for unknown indication
     Dosage: 200 MILLIGRAM, QD (200 MG OD PO)
     Route: 048
     Dates: start: 20230518, end: 20230619
  2. BEDAQUILINE [Suspect]
     Active Substance: BEDAQUILINE
     Indication: Product used for unknown indication
     Dosage: 200 MILLIGRAM, 3XW (200 MG TIW PO)
     Route: 048
     Dates: start: 20230518, end: 20230619
  3. LINEZOLID [Suspect]
     Active Substance: LINEZOLID
     Indication: Product used for unknown indication
     Dosage: 600 MILLIGRAM, QD (600 MG OD PO)
     Route: 048
     Dates: start: 20230518, end: 20230619
  4. CLOFAZIMINE [Suspect]
     Active Substance: CLOFAZIMINE
     Indication: Product used for unknown indication
     Dosage: 100 MILLIGRAM, QD (100 MG OD PO)
     Route: 048
     Dates: start: 20230518, end: 20230619
  5. PYRIDOXINE [Concomitant]
     Active Substance: PYRIDOXINE
     Indication: Prophylaxis
     Dosage: 100 MILLIGRAM, QD (100 MG PER DAY ORALLY)
     Route: 048
     Dates: start: 20230518

REACTIONS (2)
  - Nephropathy toxic [Unknown]
  - Acute kidney injury [Recovered/Resolved]

NARRATIVE: CASE EVENT DATE: 20230619
